FAERS Safety Report 9408666 (Version 1)
Quarter: 2013Q3

REPORT INFORMATION
  Report Type: Spontaneous
  Country: US (occurrence: US)
  Receive Date: 20130712
  Receipt Date: 20130712
  Transmission Date: 20140515
  Serious: Yes (Death)
  Sender: FDA-Public Use
  Company Number: US-PFIZER INC-2013203759

PATIENT
  Age: 50 Year
  Sex: Female

DRUGS (12)
  1. PAROXETINE [Suspect]
     Dosage: UNK
     Route: 048
  2. OXYCODONE HYDROCHLORIDE [Suspect]
     Dosage: UNK
     Route: 048
  3. HYDROXYZINE PAMOATE [Suspect]
     Dosage: 98 (25 MG) TABLETS WERE TAKEN OVER 33 DAYS
     Route: 048
  4. ZOLPIDEM TARTRATE [Suspect]
     Dosage: UNK
     Route: 048
  5. GABAPENTIN [Suspect]
     Dosage: UNK
     Route: 048
  6. MEPROBAMATE [Suspect]
     Dosage: UNK
     Route: 048
  7. ACETAMINOPHEN [Suspect]
     Dosage: UNK
     Route: 048
  8. HYDROMORPHONE [Suspect]
     Dosage: UNK
     Route: 048
  9. AMITRIPTYLINE [Suspect]
     Dosage: UNK
     Route: 048
  10. CARISOPRODOL [Suspect]
     Dosage: UNK
     Route: 048
  11. DULOXETINE [Suspect]
     Dosage: UNK
     Route: 048
  12. NORTRIPTYLINE [Suspect]
     Dosage: UNK
     Route: 048

REACTIONS (4)
  - Toxicity to various agents [Fatal]
  - Dysarthria [None]
  - Aspiration [None]
  - Arteriosclerosis [None]
